FAERS Safety Report 6198414-5 (Version None)
Quarter: 2009Q2

REPORT INFORMATION
  Report Type: 
  Country: None (occurrence: None)
  Receive Date: 20090521
  Receipt Date: 20090519
  Transmission Date: 20091009
  Serious: Yes (Death, Hospitalization)
  Sender: FDA-Public Use
  Company Number: FR-ABBOTT-09P-056-0571220-00

PATIENT
  Age: 86 Year
  Sex: Male

DRUGS (19)
  1. ISOPTIN [Suspect]
     Indication: DRUG USE FOR UNKNOWN INDICATION
     Route: 048
  2. LYRICA [Suspect]
     Indication: DRUG USE FOR UNKNOWN INDICATION
     Route: 048
     Dates: end: 20090101
  3. COZAAR [Concomitant]
     Indication: DRUG USE FOR UNKNOWN INDICATION
  4. PLAVIX [Concomitant]
     Indication: DRUG USE FOR UNKNOWN INDICATION
  5. FUROSEMIDE [Concomitant]
     Indication: DRUG USE FOR UNKNOWN INDICATION
  6. SEREVENT [Concomitant]
     Indication: DRUG USE FOR UNKNOWN INDICATION
  7. BRICANYL [Concomitant]
     Indication: DRUG USE FOR UNKNOWN INDICATION
  8. OMEPRAZOLE [Concomitant]
     Indication: DRUG USE FOR UNKNOWN INDICATION
  9. MOLSIDOMIDE [Concomitant]
     Indication: DRUG USE FOR UNKNOWN INDICATION
  10. NITRODERM [Concomitant]
     Indication: DRUG USE FOR UNKNOWN INDICATION
  11. MUCOMYST [Concomitant]
     Indication: DRUG USE FOR UNKNOWN INDICATION
  12. ATROVENT [Concomitant]
     Indication: DRUG USE FOR UNKNOWN INDICATION
  13. PERIKABIVEN [Concomitant]
     Indication: DRUG USE FOR UNKNOWN INDICATION
  14. FORLAX [Concomitant]
     Indication: DRUG USE FOR UNKNOWN INDICATION
  15. DEBRIDAT [Concomitant]
     Indication: DRUG USE FOR UNKNOWN INDICATION
  16. VENTOLIN [Concomitant]
     Indication: DRUG USE FOR UNKNOWN INDICATION
  17. SOLU-MEDROL [Concomitant]
     Indication: DRUG USE FOR UNKNOWN INDICATION
  18. ORGARAN [Concomitant]
     Indication: DRUG USE FOR UNKNOWN INDICATION
  19. OXYGEN [Concomitant]
     Indication: DRUG USE FOR UNKNOWN INDICATION

REACTIONS (7)
  - ACUTE PULMONARY OEDEMA [None]
  - BRONCHITIS [None]
  - CARDIOPULMONARY FAILURE [None]
  - COLONIC PSEUDO-OBSTRUCTION [None]
  - EMPHYSEMA [None]
  - INTESTINAL OBSTRUCTION [None]
  - RESPIRATORY DISTRESS [None]
